FAERS Safety Report 11846263 (Version 2)
Quarter: 2016Q1

REPORT INFORMATION
  Report Type: Spontaneous
  Country: JP (occurrence: JP)
  Receive Date: 20151217
  Receipt Date: 20160108
  Transmission Date: 20160526
  Serious: Yes (Hospitalization)
  Sender: FDA-Public Use
  Company Number: JP-SA-2015SA210769

PATIENT
  Age: 84 Year
  Sex: Male

DRUGS (1)
  1. CLOPIDOGREL BISULFATE. [Suspect]
     Active Substance: CLOPIDOGREL BISULFATE
     Route: 065

REACTIONS (5)
  - Hunger [Recovered/Resolved]
  - Insulin autoimmune syndrome [Recovered/Resolved]
  - Cold sweat [Recovered/Resolved]
  - Hypoglycaemia [Recovered/Resolved]
  - Blood glucose decreased [Recovered/Resolved]
